FAERS Safety Report 7967192-9 (Version None)
Quarter: 2011Q4

REPORT INFORMATION
  Report Type: 
  Country: None (occurrence: None)
  Receive Date: 20111209
  Receipt Date: 20111201
  Transmission Date: 20120403
  Serious: Yes (Other)
  Sender: FDA-Public Use
  Company Number: CA-UCBSA-040885

PATIENT
  Age: 32 Year
  Sex: Female
  Weight: 67 kg

DRUGS (2)
  1. KEPPRA [Suspect]
     Indication: PARTIAL SEIZURES
     Dosage: 500 MG I AM AND 750 MG AT HS, RE-STARTED ON 21-OCT-2011
     Route: 048
     Dates: start: 20110914
  2. KEPPRA [Suspect]
     Dosage: PAIENT IS CURRENTLY TAKING 500MG IN THE MORNING AND 250 MG IN THE AFTERNOON
     Route: 048
     Dates: start: 20090101

REACTIONS (4)
  - PREGNANCY [None]
  - MATERNAL EXPOSURE DURING DELIVERY [None]
  - CAESAREAN SECTION [None]
  - CONVULSION [None]
